FAERS Safety Report 24161052 (Version 1)
Quarter: 2024Q3

REPORT INFORMATION
  Report Type: Report from Study
  Country: CA (occurrence: None)
  Receive Date: 20240801
  Receipt Date: 20240801
  Transmission Date: 20241017
  Serious: Yes (Hospitalization)
  Sender: ASTRAZENECA
  Company Number: 2021A509235

PATIENT
  Sex: Female

DRUGS (7)
  1. FASENRA [Suspect]
     Active Substance: BENRALIZUMAB
     Indication: Asthma
     Dosage: 30.0MG UNKNOWN
     Route: 058
     Dates: start: 20190412
  2. OZEMPIC ONCE A WEEK [Concomitant]
  3. MONTELUKAST [Concomitant]
     Active Substance: MONTELUKAST SODIUM
  4. ALVESCO [Concomitant]
     Active Substance: CICLESONIDE
     Dosage: 200.0UG AS REQUIRED
  5. PULMICORT TURBUHALER [Concomitant]
     Active Substance: BUDESONIDE
  6. GLYCOPYRROLATE [Concomitant]
     Active Substance: GLYCOPYRROLATE
  7. ZENHALE 200/5MCG, 2INH BID [Concomitant]

REACTIONS (1)
  - Constipation [Recovered/Resolved]
